FAERS Safety Report 11618499 (Version 1)
Quarter: 2015Q4

REPORT INFORMATION
  Report Type: Spontaneous
  Country: US (occurrence: US)
  Receive Date: 20151012
  Receipt Date: 20151012
  Transmission Date: 20160304
  Serious: No
  Sender: FDA-Public Use
  Company Number: US-TEVA-589624USA

PATIENT
  Sex: Male

DRUGS (2)
  1. SILDENAFIL. [Suspect]
     Active Substance: SILDENAFIL
     Route: 065
  2. VIAGRA [Suspect]
     Active Substance: SILDENAFIL CITRATE
     Route: 065

REACTIONS (1)
  - Product use issue [Unknown]
